FAERS Safety Report 17581673 (Version 1)
Quarter: 2020Q1

REPORT INFORMATION
  Report Type: Report from Study
  Country: DE (occurrence: DE)
  Receive Date: 20200325
  Receipt Date: 20200325
  Transmission Date: 20200409
  Serious: Yes (Hospitalization)
  Sender: FDA-Public Use
  Company Number: DE-TEVA-2020-DE-1207942

PATIENT
  Age: 43 Year
  Sex: Female
  Weight: 65 kg

DRUGS (10)
  1. CARBOPLATIN. [Suspect]
     Active Substance: CARBOPLATIN
     Dosage: AUC6 1ST CYCLE(S)
     Route: 042
     Dates: start: 20031216, end: 20031216
  2. CAELYX (LIPOSOMAL DOXORUBICIN) [Suspect]
     Active Substance: DOXORUBICIN HYDROCHLORIDE
     Dosage: 40 MG 3RD CYCLE(S)
     Route: 042
     Dates: start: 20040223, end: 20040223
  3. CARBOPLATIN. [Suspect]
     Active Substance: CARBOPLATIN
     Dosage: AUC6 3RD CYCLE(S), 40 MG
     Route: 042
     Dates: start: 20040223, end: 20040223
  4. CAELYX (LIPOSOMAL DOXORUBICIN) [Suspect]
     Active Substance: DOXORUBICIN HYDROCHLORIDE
     Dosage: 40 MG QD *  CONTINUING
     Route: 042
     Dates: start: 20031216
  5. CARBOPLATIN. [Suspect]
     Active Substance: CARBOPLATIN
     Dosage: AUC6 4TH CYCLE(S)
     Route: 042
     Dates: start: 20040405
  6. CARBOPLATIN. [Suspect]
     Active Substance: CARBOPLATIN
     Indication: OVARIAN CANCER
     Dosage: AUC6 2ND CYCLE(S)
     Route: 042
     Dates: start: 200401, end: 200401
  7. CAELYX (LIPOSOMAL DOXORUBICIN) [Suspect]
     Active Substance: DOXORUBICIN HYDROCHLORIDE
     Dosage: 40 MG 2ND CYCLE(S)
     Route: 042
     Dates: start: 200401, end: 200401
  8. CAELYX (LIPOSOMAL DOXORUBICIN) [Suspect]
     Active Substance: DOXORUBICIN HYDROCHLORIDE
     Dosage: 40 MG 4TH CYCLE(S)
     Route: 042
     Dates: start: 20040405
  9. CARBOPLATIN. [Suspect]
     Active Substance: CARBOPLATIN
     Dosage: AUC6 *  CONTINUING
     Route: 042
     Dates: start: 20031216
  10. CAELYX (LIPOSOMAL DOXORUBICIN) [Suspect]
     Active Substance: DOXORUBICIN HYDROCHLORIDE
     Indication: OVARIAN CANCER
     Dosage: 40 MG 1ST CYCLE(S)
     Route: 042
     Dates: start: 20031216, end: 20031216

REACTIONS (1)
  - Pancytopenia [Recovered/Resolved]

NARRATIVE: CASE EVENT DATE: 20040312
